FAERS Safety Report 17886808 (Version 1)
Quarter: 2020Q2

REPORT INFORMATION
  Report Type: Report from Study
  Country: CA (occurrence: CA)
  Receive Date: 20200611
  Receipt Date: 20200611
  Transmission Date: 20200714
  Serious: No
  Sender: FDA-Public Use
  Company Number: CA-TOLMAR, INC.-20CA020230

PATIENT
  Age: 75 Year
  Sex: Male

DRUGS (1)
  1. ELIGARD [Suspect]
     Active Substance: LEUPROLIDE ACETATE
     Indication: PROSTATE CANCER
     Dosage: 22.5 MG, Q 3 MONTH
     Route: 058
     Dates: start: 20190812

REACTIONS (9)
  - Anxiety [Unknown]
  - Headache [Not Recovered/Not Resolved]
  - Depression [Unknown]
  - Dysuria [Unknown]
  - Mood swings [Unknown]
  - Dizziness [Not Recovered/Not Resolved]
  - Poor quality sleep [Unknown]
  - Hot flush [Not Recovered/Not Resolved]
  - Nocturia [Unknown]

NARRATIVE: CASE EVENT DATE: 201908
